FAERS Safety Report 8226967-1 (Version None)
Quarter: 2012Q1

REPORT INFORMATION
  Report Type: 
  Country: None (occurrence: None)
  Receive Date: 20120322
  Receipt Date: 20120313
  Transmission Date: 20120608
  Serious: Yes (Other)
  Sender: FDA-Public Use
  Company Number: CO-JNJFOC-20120307372

PATIENT
  Age: 78 Year
  Sex: Female

DRUGS (1)
  1. GALANTAMINE HYDROBROMIDE [Suspect]
     Indication: SENILE DEMENTIA
     Route: 048
     Dates: start: 20110318, end: 20110601

REACTIONS (3)
  - DECREASED APPETITE [None]
  - ABNORMAL BEHAVIOUR [None]
  - DIZZINESS [None]
